FAERS Safety Report 6416809-9 (Version None)
Quarter: 2009Q4

REPORT INFORMATION
  Report Type: 
  Country: None (occurrence: None)
  Receive Date: 20091027
  Receipt Date: 20091021
  Transmission Date: 20100525
  Serious: Yes (Hospitalization)
  Sender: FDA-Public Use
  Company Number: US-MERCK-0910USA02746

PATIENT
  Sex: Male

DRUGS (6)
  1. ISENTRESS [Suspect]
     Indication: HIV INFECTION
     Route: 048
     Dates: start: 20090801
  2. ISENTRESS [Suspect]
     Route: 048
     Dates: end: 20090901
  3. BACTRIM [Concomitant]
     Route: 065
  4. TRUVADA [Suspect]
     Route: 065
  5. ETRAVIRINE [Suspect]
     Route: 065
  6. SAQUINAVIR [Suspect]
     Route: 065

REACTIONS (2)
  - HEPATOTOXICITY [None]
  - RASH [None]
